FAERS Safety Report 5303764-8 (Version None)
Quarter: 2007Q2

REPORT INFORMATION
  Report Type: 
  Country: None (occurrence: None)
  Receive Date: 20070420
  Receipt Date: 20070411
  Transmission Date: 20071010
  Serious: Yes (Hospitalization, Other)
  Sender: FDA-Public Use
  Company Number: US-AMGEN-STX219134

PATIENT
  Sex: Female

DRUGS (2)
  1. ENBREL [Suspect]
     Indication: RHEUMATOID ARTHRITIS
     Route: 058
     Dates: start: 20021219
  2. METHOTREXATE [Concomitant]
     Route: 048

REACTIONS (5)
  - CYSTITIS [None]
  - INTESTINAL OBSTRUCTION [None]
  - KIDNEY INFECTION [None]
  - OOPHORECTOMY BILATERAL [None]
  - RHEUMATOID ARTHRITIS [None]
